FAERS Safety Report 6682813-9 (Version None)
Quarter: 2010Q2

REPORT INFORMATION
  Report Type: 
  Country: None (occurrence: None)
  Receive Date: 20100415
  Receipt Date: 20100407
  Transmission Date: 20101027
  Serious: Yes (Hospitalization, Other)
  Sender: FDA-Public Use
  Company Number: JP-ABBOTT-10P-087-0630607-00

PATIENT
  Age: 48 Year
  Sex: Female

DRUGS (5)
  1. AKINETON [Suspect]
     Indication: DRUG USE FOR UNKNOWN INDICATION
  2. BROTIZOLAM [Suspect]
     Indication: DRUG USE FOR UNKNOWN INDICATION
  3. PAROXETINE HCL [Suspect]
     Indication: DRUG USE FOR UNKNOWN INDICATION
  4. DILORAZEPAM [Suspect]
     Indication: DRUG USE FOR UNKNOWN INDICATION
  5. BROMOVALERYLUREA [Suspect]
     Indication: DRUG USE FOR UNKNOWN INDICATION

REACTIONS (2)
  - DEPRESSED LEVEL OF CONSCIOUSNESS [None]
  - OVERDOSE [None]
